FAERS Safety Report 10471677 (Version 1)
Quarter: 2014Q3

REPORT INFORMATION
  Report Type: Report from Study
  Country: US (occurrence: US)
  Receive Date: 20140923
  Receipt Date: 20140923
  Transmission Date: 20150326
  Serious: Yes (Other)
  Sender: FDA-Public Use
  Company Number: US-ALEXION PHARMACEUTICALS INC-A201305744

PATIENT
  Age: 69 Year
  Sex: Male

DRUGS (1)
  1. SOLIRIS [Suspect]
     Active Substance: ECULIZUMAB
     Indication: PAROXYSMAL NOCTURNAL HAEMOGLOBINURIA
     Dosage: UNK
     Route: 042

REACTIONS (3)
  - Infection [Recovering/Resolving]
  - Biopsy bone marrow [Unknown]
  - Rotator cuff syndrome [Unknown]

NARRATIVE: CASE EVENT DATE: 201310
